FAERS Safety Report 13216075 (Version 2)
Quarter: 2017Q2

REPORT INFORMATION
  Report Type: Report from Study
  Country: None (occurrence: US)
  Receive Date: 20170209
  Receipt Date: 20170602
  Transmission Date: 20170830
  Serious: Yes (Other)
  Sender: FDA-Public Use
  Company Number: US-ABBVIE-16K-163-1797750-00

PATIENT
  Age: 61 Year
  Sex: Female

DRUGS (1)
  1. HUMIRA [Suspect]
     Active Substance: ADALIMUMAB
     Indication: PSORIASIS
     Route: 058
     Dates: start: 2016

REACTIONS (9)
  - Melanocytic naevus [Not Recovered/Not Resolved]
  - Psoriasis [Not Recovered/Not Resolved]
  - Melanocytic naevus [Not Recovered/Not Resolved]
  - Dry skin [Not Recovered/Not Resolved]
  - Pruritus [Not Recovered/Not Resolved]
  - Psoriatic arthropathy [Unknown]
  - Drug ineffective [Not Recovered/Not Resolved]
  - Alopecia [Recovering/Resolving]
  - Psoriasis [Unknown]

NARRATIVE: CASE EVENT DATE: 201611
